FAERS Safety Report 25413187 (Version 1)
Quarter: 2025Q2

REPORT INFORMATION
  Report Type: Spontaneous
  Country: US (occurrence: None)
  Receive Date: 20250606
  Receipt Date: 20250606
  Transmission Date: 20250717
  Serious: Yes (Life-Threatening, Hospitalization, Disabling)
  Sender: FDA-CTU
  Company Number: None

PATIENT
  Age: 42 Year
  Sex: Female
  Weight: 65.25 kg

DRUGS (1)
  1. ESCITALOPRAM [Suspect]
     Active Substance: ESCITALOPRAM OXALATE
     Dates: start: 20090802, end: 20090802

REACTIONS (3)
  - Long QT syndrome [None]
  - Panic attack [None]
  - Nervous system disorder [None]

NARRATIVE: CASE EVENT DATE: 20090802
